FAERS Safety Report 5857082-X (Version None)
Quarter: 2008Q3

REPORT INFORMATION
  Report Type: 
  Country: None (occurrence: None)
  Receive Date: 20080825
  Receipt Date: 20080814
  Transmission Date: 20090109
  Serious: No
  Sender: FDA-Public Use
  Company Number: US-BOEHRINGER INGELHEIM GMBH, GERMANY-2008-BP-10130BP

PATIENT
  Sex: Male

DRUGS (4)
  1. SPIRIVA [Suspect]
     Indication: CHRONIC OBSTRUCTIVE PULMONARY DISEASE
     Dates: start: 20030101
  2. SPIRIVA [Suspect]
     Indication: EMPHYSEMA
  3. ALBUTEROL SULFATE [Concomitant]
  4. SYMBICORT [Concomitant]

REACTIONS (3)
  - HYPERSENSITIVITY [None]
  - PRURITUS GENERALISED [None]
  - RASH [None]
